FAERS Safety Report 14684980 (Version 2)
Quarter: 2018Q2

REPORT INFORMATION
  Report Type: Report from Study
  Country: None (occurrence: DE)
  Receive Date: 20180327
  Receipt Date: 20180402
  Transmission Date: 20180711
  Serious: Yes (Hospitalization)
  Sender: FDA-Public Use
  Company Number: DE-ABBVIE-17P-062-2123702-00

PATIENT
  Age: 60 Year
  Sex: Female

DRUGS (3)
  1. OBINUTUZUMAB. [Concomitant]
     Active Substance: OBINUTUZUMAB
     Indication: CHRONIC LYMPHOCYTIC LEUKAEMIA
     Dosage: DATE OF LAST DOSE PRIOR TO SAE 28 MAR 2017
     Route: 042
     Dates: start: 20161103
  2. IBRUTINIB [Suspect]
     Active Substance: IBRUTINIB
     Indication: CHRONIC LYMPHOCYTIC LEUKAEMIA
     Dosage: DATE OF LAST DOSE PRIOR TO SAE 28 MAR 2017
     Route: 048
     Dates: start: 20161103
  3. VENETOCLAX. [Suspect]
     Active Substance: VENETOCLAX
     Indication: CHRONIC LYMPHOCYTIC LEUKAEMIA
     Dosage: DATE OF LAST DOSE PRIOR TO AE 27 SEP 2017
     Route: 048
     Dates: start: 20161128

REACTIONS (2)
  - Adenoma benign [Not Recovered/Not Resolved]
  - Salpingo-oophorectomy [Recovered/Resolved]

NARRATIVE: CASE EVENT DATE: 20170927
